FAERS Safety Report 8908593 (Version 2)
Quarter: 2013Q1

REPORT INFORMATION
  Report Type: Spontaneous
  Country: US (occurrence: US)
  Receive Date: 20121114
  Receipt Date: 20130117
  Transmission Date: 20140127
  Serious: Yes (Hospitalization)
  Sender: FDA-Public Use
  Company Number: GXBR2012US002289

PATIENT
  Age: 23 Year
  Sex: Male

DRUGS (2)
  1. CEFTRIAXONE [Suspect]
     Dosage: 1 G, ONCE/SINGLE
     Route: 030
     Dates: start: 20121023, end: 20121023
  2. LIDOCAINE [Suspect]
     Dosage: 2 %, UNK
     Route: 030
     Dates: start: 20121023, end: 20121023

REACTIONS (4)
  - Blood pressure decreased [Recovered/Resolved]
  - Dyspnoea [Recovered/Resolved]
  - Chest pain [Recovered/Resolved]
  - Asthenia [Recovered/Resolved]
